FAERS Safety Report 23935650 (Version 2)
Quarter: 2024Q3

REPORT INFORMATION
  Report Type: Spontaneous
  Country: US (occurrence: US)
  Receive Date: 20240604
  Receipt Date: 20240709
  Transmission Date: 20241016
  Serious: Yes (Life-Threatening, Hospitalization, Other)
  Sender: AUROBINDO
  Company Number: US-MLMSERVICE-20240514-PI059358-00232-1

PATIENT
  Age: 43 Year
  Sex: Male

DRUGS (2)
  1. MYCOPHENOLIC ACID [Suspect]
     Active Substance: MYCOPHENOLIC ACID
     Indication: Product used for unknown indication
     Dosage: UNK
     Route: 065
  2. TACROLIMUS [Suspect]
     Active Substance: TACROLIMUS
     Indication: Product used for unknown indication
     Dosage: UNK
     Route: 065

REACTIONS (6)
  - Encephalopathy [Unknown]
  - Streptococcal sepsis [Unknown]
  - Streptococcal bacteraemia [Unknown]
  - Meningitis staphylococcal [Unknown]
  - Otitis media [Unknown]
  - Acute sinusitis [Unknown]
